FAERS Safety Report 13367237 (Version 1)
Quarter: 2017Q1

REPORT INFORMATION
  Report Type: Spontaneous
  Country: GR (occurrence: GR)
  Receive Date: 20170324
  Receipt Date: 20170324
  Transmission Date: 20170429
  Serious: Yes (Other)
  Sender: FDA-Public Use
  Company Number: GR-TAKEDA-2017TUS005684

PATIENT
  Age: 30 Year
  Sex: Female
  Weight: 76 kg

DRUGS (4)
  1. ENTYVIO [Suspect]
     Active Substance: VEDOLIZUMAB
     Dosage: 300 MG, Q8WEEKS
     Route: 042
     Dates: end: 201606
  2. ENTYVIO [Suspect]
     Active Substance: VEDOLIZUMAB
     Indication: CROHN^S DISEASE
     Dosage: 300 MG, UNK
     Route: 042
     Dates: start: 201506
  3. ENTYVIO [Suspect]
     Active Substance: VEDOLIZUMAB
     Dosage: 300 MG, Q4WEEKS
     Route: 042
     Dates: start: 201606
  4. ENTYVIO [Suspect]
     Active Substance: VEDOLIZUMAB
     Dosage: 300 MG, Q4WEEKS
     Route: 042

REACTIONS (10)
  - Large intestinal stenosis [Unknown]
  - Mental disorder [Unknown]
  - Red blood cell sedimentation rate increased [Unknown]
  - Crohn^s disease [Unknown]
  - Crohn^s disease [Unknown]
  - Large intestinal ulcer [Unknown]
  - Gastrointestinal ulcer [Unknown]
  - Anaemia [Unknown]
  - Weight decreased [Unknown]
  - C-reactive protein increased [Unknown]

NARRATIVE: CASE EVENT DATE: 201510
